FAERS Safety Report 6406267-2 (Version None)
Quarter: 2009Q4

REPORT INFORMATION
  Report Type: 
  Country: None (occurrence: None)
  Receive Date: 20091019
  Receipt Date: 20091006
  Transmission Date: 20100525
  Serious: Yes (Other)
  Sender: FDA-Public Use
  Company Number: PHHY2009NL38808

PATIENT
  Sex: Female
  Weight: 68 kg

DRUGS (3)
  1. ZOMETA [Suspect]
     Indication: BREAST CANCER
     Dosage: UNK
     Route: 042
     Dates: start: 20090909, end: 20090909
  2. ZOMETA [Suspect]
     Indication: OSTEOPOROSIS
  3. AROMASIN [Concomitant]
     Indication: BREAST CANCER
     Dosage: UNK
     Dates: start: 20070101

REACTIONS (10)
  - ACTIVITIES OF DAILY LIVING IMPAIRED [None]
  - ARTHRALGIA [None]
  - BONE PAIN [None]
  - FATIGUE [None]
  - FEELING ABNORMAL [None]
  - JOINT SWELLING [None]
  - MALAISE [None]
  - MOVEMENT DISORDER [None]
  - MYALGIA [None]
  - PAIN [None]
